FAERS Safety Report 6715335-7 (Version None)
Quarter: 2010Q2

REPORT INFORMATION
  Report Type: 
  Country: None (occurrence: None)
  Receive Date: 20100507
  Receipt Date: 20100506
  Transmission Date: 20101027
  Serious: Yes (Other)
  Sender: FDA-Public Use
  Company Number: CN-ROXANE LABORATORIES, INC.-2010-RO-00527RO

PATIENT
  Age: 33 Year
  Sex: Male
  Weight: 56 kg

DRUGS (6)
  1. METHADONE HCL [Suspect]
     Indication: DRUG DEPENDENCE
     Dates: start: 20080407, end: 20080811
  2. CATAPRES [Suspect]
     Indication: WITHDRAWAL SYNDROME
     Dates: start: 20080827
  3. INDERAL [Suspect]
     Indication: WITHDRAWAL SYNDROME
     Dates: start: 20080827
  4. MEDICAN-A [Suspect]
     Indication: WITHDRAWAL SYNDROME
     Dates: start: 20080827
  5. HYPNOTIC [Suspect]
     Indication: INSOMNIA
     Dates: start: 20080827
  6. ANTIHISTAMINE [Suspect]
     Indication: RHINORRHOEA
     Dates: start: 20080827

REACTIONS (4)
  - DECREASED APPETITE [None]
  - DRUG WITHDRAWAL SYNDROME [None]
  - INTENTIONAL DRUG MISUSE [None]
  - OVERDOSE [None]
